FAERS Safety Report 20225092 (Version 1)
Quarter: 2021Q4

REPORT INFORMATION
  Report Type: Spontaneous
  Country: US (occurrence: US)
  Receive Date: 20211223
  Receipt Date: 20211223
  Transmission Date: 20220303
  Serious: Yes (Death, Hospitalization, Other)
  Sender: FDA-Public Use
  Company Number: US-ORGANON-O2112USA002007

PATIENT
  Age: 33 Year
  Sex: Female

DRUGS (9)
  1. REMERON [Suspect]
     Active Substance: MIRTAZAPINE
     Dosage: UNK
     Route: 048
  2. LACOSAMIDE [Suspect]
     Active Substance: LACOSAMIDE
     Dosage: UNK
     Route: 048
  3. CENOBAMATE [Suspect]
     Active Substance: CENOBAMATE
     Dosage: UNK
     Route: 048
  4. PREGABALIN [Suspect]
     Active Substance: PREGABALIN
     Dosage: UNK
     Route: 048
  5. CLOBAZAM [Suspect]
     Active Substance: CLOBAZAM
     Dosage: UNK
     Route: 048
  6. DULOXETINE [Suspect]
     Active Substance: DULOXETINE
     Dosage: UNK
     Route: 048
  7. BACLOFEN [Suspect]
     Active Substance: BACLOFEN
     Dosage: UNK
     Route: 048
  8. LINACLOTIDE [Suspect]
     Active Substance: LINACLOTIDE
     Dosage: UNK
     Route: 048
  9. MIDAZOLAM [Suspect]
     Active Substance: MIDAZOLAM
     Dosage: UNK
     Route: 048

REACTIONS (2)
  - Suspected suicide [Fatal]
  - Cardio-respiratory arrest [Unknown]
